FAERS Safety Report 19744446 (Version 1)
Quarter: 2021Q3

REPORT INFORMATION
  Report Type: Other
  Country: CA (occurrence: CA)
  Receive Date: 20210825
  Receipt Date: 20210825
  Transmission Date: 20211014
  Serious: Yes (Death, Hospitalization, Other)
  Sender: FDA-Public Use
  Company Number: CA-APOTEX-2021AP035828

PATIENT
  Age: 17 Year
  Sex: Female

DRUGS (6)
  1. ONDANSETRON [Suspect]
     Active Substance: ONDANSETRON
     Indication: VOMITING
     Dosage: 8 MILLIGRAM
     Route: 065
  2. ONDANSETRON [Suspect]
     Active Substance: ONDANSETRON
     Indication: NAUSEA
  3. ACETAMINOPHEN. [Concomitant]
     Active Substance: ACETAMINOPHEN
     Indication: PRODUCT USED FOR UNKNOWN INDICATION
     Dosage: UNK
     Route: 065
  4. METOCLOPRAMIDE. [Concomitant]
     Active Substance: METOCLOPRAMIDE
     Indication: PRODUCT USED FOR UNKNOWN INDICATION
     Dosage: UNK
     Route: 065
  5. DIMENHYDRINATE. [Concomitant]
     Active Substance: DIMENHYDRINATE
     Indication: PRODUCT USED FOR UNKNOWN INDICATION
     Dosage: UNK
     Route: 065
  6. N?ACETYLCYSTEINE [Concomitant]
     Active Substance: ACETYLCYSTEINE
     Indication: PRODUCT USED FOR UNKNOWN INDICATION
     Dosage: UNK
     Route: 065

REACTIONS (16)
  - Brain herniation [Fatal]
  - Brain oedema [Fatal]
  - Intracranial pressure increased [Fatal]
  - Rash maculo-papular [Fatal]
  - Seizure [Fatal]
  - Agitation [Fatal]
  - Hyperhidrosis [Fatal]
  - Mydriasis [Fatal]
  - Drug ineffective [Fatal]
  - Overdose [Fatal]
  - Confusional state [Fatal]
  - Ischaemia [Fatal]
  - Decerebrate posture [Fatal]
  - Hypopnoea [Fatal]
  - Brain death [Fatal]
  - Flushing [Fatal]
